FAERS Safety Report 8574070-3 (Version None)
Quarter: 2012Q3

REPORT INFORMATION
  Report Type: 
  Country: None (occurrence: None)
  Receive Date: 20120806
  Receipt Date: 20120727
  Transmission Date: 20120928
  Serious: Yes (Hospitalization)
  Sender: FDA-Public Use
  Company Number: US-ASTRAZENECA-2011SE25881

PATIENT
  Age: 66 Year
  Sex: Male

DRUGS (2)
  1. SEROQUEL [Suspect]
     Indication: DEPRESSION
     Route: 048
     Dates: start: 20110201
  2. SEROQUEL [Suspect]
     Route: 048

REACTIONS (4)
  - CEREBROVASCULAR ACCIDENT [None]
  - DEPRESSION [None]
  - ADVERSE EVENT [None]
  - BLINDNESS [None]
